FAERS Safety Report 22604241 (Version 1)
Quarter: 2023Q2

REPORT INFORMATION
  Report Type: Spontaneous
  Country: US (occurrence: US)
  Receive Date: 20230615
  Receipt Date: 20230615
  Transmission Date: 20230721
  Serious: Yes (Other)
  Sender: FDA-Public Use
  Company Number: US-AMGEN-USASP2023102525

PATIENT

DRUGS (2)
  1. BLINATUMOMAB [Suspect]
     Active Substance: BLINATUMOMAB
     Indication: B precursor type acute leukaemia
     Dosage: UNK
     Route: 065
  2. DASATINIB [Concomitant]
     Active Substance: DASATINIB
     Dosage: UNK
     Route: 065

REACTIONS (3)
  - B precursor type acute leukaemia [Unknown]
  - Minimal residual disease [Unknown]
  - Gene mutation [Unknown]
